FAERS Safety Report 9776394 (Version 2)
Quarter: 2013Q4

REPORT INFORMATION
  Report Type: Report from Study
  Country: US (occurrence: US)
  Receive Date: 20131220
  Receipt Date: 20131220
  Transmission Date: 20140711
  Serious: Yes (Hospitalization, Other)
  Sender: FDA-Public Use
  Company Number: US-ABBVIE-13P-163-1136279-00

PATIENT
  Age: 33 Year
  Sex: Male
  Weight: 82.17 kg

DRUGS (2)
  1. HUMIRA [Suspect]
     Indication: PSORIATIC ARTHROPATHY
     Route: 058
     Dates: start: 20130819
  2. STEROID CREAM [Concomitant]
     Indication: PRODUCT USED FOR UNKNOWN INDICATION
     Route: 061

REACTIONS (14)
  - Anxiety [Recovered/Resolved]
  - Flushing [Unknown]
  - Dyspnoea [Recovered/Resolved]
  - Chest discomfort [Recovered/Resolved]
  - Hyperhidrosis [Recovered/Resolved]
  - Dysphagia [Unknown]
  - Dry mouth [Recovered/Resolved]
  - Lip dry [Recovered/Resolved]
  - Disturbance in attention [Recovered/Resolved]
  - Tremor [Recovered/Resolved]
  - Palpitations [Recovered/Resolved]
  - Anaphylactic shock [Recovered/Resolved]
  - Dry mouth [Not Recovered/Not Resolved]
  - Dry throat [Not Recovered/Not Resolved]
